FAERS Safety Report 7522075-3 (Version None)
Quarter: 2011Q2

REPORT INFORMATION
  Report Type: 
  Country: None (occurrence: None)
  Receive Date: 20110603
  Receipt Date: 20110525
  Transmission Date: 20111010
  Serious: Yes (Other)
  Sender: FDA-Public Use
  Company Number: US-JNJFOC-20110512271

PATIENT
  Age: 61 Year
  Sex: Female
  Weight: 105.69 kg

DRUGS (2)
  1. BENADRYL [Concomitant]
     Indication: PREMEDICATION
     Route: 042
  2. DOXIL [Suspect]
     Indication: OVARIAN CANCER
     Route: 042
     Dates: start: 20110525, end: 20110525

REACTIONS (3)
  - MUSCLE SPASMS [None]
  - NEUROPATHY PERIPHERAL [None]
  - INFUSION RELATED REACTION [None]
